FAERS Safety Report 4327836-X (Version None)
Quarter: 2004Q1

REPORT INFORMATION
  Report Type: 
  Country: None (occurrence: None)
  Receive Date: 20040325
  Receipt Date: 20040311
  Transmission Date: 20041129
  Serious: Yes (Hospitalization)
  Sender: FDA-Public Use
  Company Number: A0426253A

PATIENT
  Age: 47 Year
  Sex: Female

DRUGS (1)
  1. COMMIT [Suspect]
     Indication: EX-SMOKER
     Dosage: 4 MG/TWICE PER DAY/TRANSBUCCAL
     Route: 002
     Dates: start: 20030501, end: 20030601

REACTIONS (9)
  - CANDIDIASIS [None]
  - GASTROOESOPHAGEAL REFLUX DISEASE [None]
  - HOARSENESS [None]
  - HYPERSENSITIVITY [None]
  - LARYNGEAL OEDEMA [None]
  - LARYNX IRRITATION [None]
  - OROPHARYNGEAL SWELLING [None]
  - PHARYNGEAL HAEMORRHAGE [None]
  - POST PROCEDURAL HAEMORRHAGE [None]
